FAERS Safety Report 10482073 (Version 1)
Quarter: 2014Q3

REPORT INFORMATION
  Report Type: Spontaneous
  Country: US (occurrence: US)
  Receive Date: 20140929
  Receipt Date: 20140929
  Transmission Date: 20150326
  Serious: No
  Sender: FDA-Public Use
  Company Number: US-BAUSCH-BL-2014-000729

PATIENT
  Age: 74 Year
  Sex: Male
  Weight: 74.91 kg

DRUGS (1)
  1. ERYTHROMYCIN OPHTHALMIC OINTMENT USP 0.5% [Suspect]
     Active Substance: ERYTHROMYCIN
     Indication: EYE INFECTION
     Dosage: 2 TIMES A DAY, MORNING AND EVENING
     Route: 047
     Dates: start: 20140123, end: 20140126

REACTIONS (4)
  - Eye irritation [Recovered/Resolved]
  - Rash [Recovered/Resolved]
  - Eye pain [Recovered/Resolved]
  - Pruritus [Recovered/Resolved]

NARRATIVE: CASE EVENT DATE: 201401
